FAERS Safety Report 15534008 (Version 1)
Quarter: 2018Q4

REPORT INFORMATION
  Report Type: Spontaneous
  Country: DE (occurrence: DE)
  Receive Date: 20181019
  Receipt Date: 20181019
  Transmission Date: 20190205
  Serious: Yes (Other)
  Sender: FDA-Public Use
  Company Number: DE-MYLANLABS-2018M1072430

PATIENT
  Sex: Male
  Weight: 97 kg

DRUGS (3)
  1. CITALOPRAM DURA 40 MG FILMTABLETTEN [Suspect]
     Active Substance: CITALOPRAM HYDROBROMIDE
     Dosage: 21.92 MG, UNK
  2. CITALOPRAM DURA 40 MG FILMTABLETTEN [Suspect]
     Active Substance: CITALOPRAM HYDROBROMIDE
     Indication: PANIC ATTACK
     Dosage: 40 MG, QD
     Route: 065
     Dates: start: 2012
  3. CITALOPRAM DURA 40 MG FILMTABLETTEN [Suspect]
     Active Substance: CITALOPRAM HYDROBROMIDE
     Dosage: 21.6 MG, UNK

REACTIONS (20)
  - Restlessness [Recovered/Resolved]
  - Suicidal ideation [Recovered/Resolved]
  - Mental fatigue [Recovered/Resolved]
  - Impaired work ability [Not Recovered/Not Resolved]
  - Disturbance in attention [Recovered/Resolved]
  - Dry eye [Recovered/Resolved]
  - Epididymitis [Recovered/Resolved]
  - Fatigue [Recovered/Resolved]
  - Micturition frequency decreased [Recovered/Resolved]
  - Agitation [Recovered/Resolved]
  - Myalgia [Recovered/Resolved]
  - Mucosal dryness [Recovered/Resolved]
  - Depressed mood [Recovered/Resolved]
  - Decreased appetite [Recovered/Resolved]
  - Arthralgia [Recovered/Resolved]
  - Aggression [Recovered/Resolved]
  - Vitreous floaters [Recovered/Resolved]
  - Orgasm abnormal [Recovered/Resolved]
  - Eye irritation [Recovered/Resolved]
  - Loss of libido [Recovered/Resolved]
